FAERS Safety Report 6852393-3 (Version None)
Quarter: 2010Q3

REPORT INFORMATION
  Report Type: 
  Country: None (occurrence: None)
  Receive Date: 20100717
  Receipt Date: 20071112
  Transmission Date: 20110219
  Serious: No
  Sender: FDA-Public Use
  Company Number: US-PFIZER INC-2007096936

PATIENT
  Sex: Female
  Weight: 113.6 kg

DRUGS (2)
  1. CHANTIX [Suspect]
     Indication: SMOKING CESSATION THERAPY
     Dates: start: 20071103
  2. ENALAPRIL MALEATE [Concomitant]
     Indication: BLOOD PRESSURE
     Dates: start: 20030101

REACTIONS (5)
  - DECREASED APPETITE [None]
  - DRY MOUTH [None]
  - HEADACHE [None]
  - NAUSEA [None]
  - RED BLOOD CELL COUNT INCREASED [None]
